FAERS Safety Report 8740321 (Version 2)
Quarter: 2013Q4

REPORT INFORMATION
  Report Type: Spontaneous
  Country: US (occurrence: US)
  Receive Date: 20120823
  Receipt Date: 20131101
  Transmission Date: 20140711
  Serious: No
  Sender: FDA-Public Use
  Company Number: US-009507513-1208USA004144

PATIENT
  Age: 74 Year
  Sex: Female

DRUGS (6)
  1. FOSAMAX [Suspect]
     Indication: OSTEOPENIA
     Dosage: UNK
     Route: 048
     Dates: start: 2007, end: 2007
  2. ATACAND [Concomitant]
     Indication: HYPERTENSION
     Dosage: 32 MG, QD
     Route: 048
  3. NEXIUM [Concomitant]
     Dosage: 40 MG, QD
     Route: 048
  4. SPIRIVA [Concomitant]
     Dosage: UNK, QD
     Route: 055
  5. VITAMINS (UNSPECIFIED) [Concomitant]
  6. MINERALS (UNSPECIFIED) [Concomitant]

REACTIONS (1)
  - Arthralgia [Recovered/Resolved]
